FAERS Safety Report 6108720-8 (Version None)
Quarter: 2009Q1

REPORT INFORMATION
  Report Type: 
  Country: None (occurrence: None)
  Receive Date: 20090310
  Receipt Date: 20090302
  Transmission Date: 20090719
  Serious: Yes (Other)
  Sender: FDA-Public Use
  Company Number: GB-RANBAXY-2009RR-22315

PATIENT
  Age: 60 Year
  Sex: Male

DRUGS (3)
  1. AMOXICILLIN [Suspect]
     Dosage: 1 DF, UNK
     Route: 048
  2. PABRINEX [Suspect]
     Dosage: 2 DF, UNK
     Route: 042
  3. ALCOHOL [Concomitant]

REACTIONS (3)
  - DRUG HYPERSENSITIVITY [None]
  - PERIORBITAL OEDEMA [None]
  - RASH ERYTHEMATOUS [None]
